FAERS Safety Report 21879419 (Version 1)
Quarter: 2023Q1

REPORT INFORMATION
  Report Type: Spontaneous
  Country: US (occurrence: US)
  Receive Date: 20230118
  Receipt Date: 20230118
  Transmission Date: 20230417
  Serious: No
  Sender: FDA-Public Use
  Company Number: US-ABBVIE-4270505

PATIENT
  Age: 62 Year
  Sex: Female
  Weight: 114.75 kg

DRUGS (2)
  1. SKYRIZI [Suspect]
     Active Substance: RISANKIZUMAB-RZAA
     Indication: Product used for unknown indication
     Dosage: NDC# 0074210001
     Route: 058
     Dates: start: 20221222
  2. SKYRIZI [Suspect]
     Active Substance: RISANKIZUMAB-RZAA
     Indication: Psoriasis
     Dosage: NDC# 0074210001
     Route: 058
     Dates: start: 20221222

REACTIONS (3)
  - Rash [Recovering/Resolving]
  - Skin ulcer [Unknown]
  - Rash macular [Unknown]

NARRATIVE: CASE EVENT DATE: 20230113
